FAERS Safety Report 4348529-9 (Version None)
Quarter: 2004Q2

REPORT INFORMATION
  Report Type: 
  Country: None (occurrence: None)
  Receive Date: 20040427
  Receipt Date: 20040329
  Transmission Date: 20050107
  Serious: Yes (Other)
  Sender: FDA-Public Use
  Company Number: US-ROCHE-363344

PATIENT
  Age: 40 Year
  Sex: Male
  Weight: 69.4 kg

DRUGS (5)
  1. PEGASYS [Suspect]
     Route: 058
     Dates: start: 20040227
  2. COPEGUS [Suspect]
     Route: 048
     Dates: start: 20040227
  3. ZOLOFT [Concomitant]
     Indication: DEPRESSION
     Route: 048
     Dates: start: 20040215
  4. NEUPOGEN [Concomitant]
     Indication: NEUTROPENIA
     Route: 058
     Dates: start: 20040309
  5. MIDRIN [Concomitant]
     Route: 048
     Dates: start: 20040215

REACTIONS (6)
  - DIZZINESS [None]
  - INFLUENZA LIKE ILLNESS [None]
  - LOSS OF CONSCIOUSNESS [None]
  - NEUTROPENIA [None]
  - SYNCOPE [None]
  - WHITE BLOOD CELL COUNT DECREASED [None]
